FAERS Safety Report 6443610-2 (Version None)
Quarter: 2009Q4

REPORT INFORMATION
  Report Type: 
  Country: None (occurrence: None)
  Receive Date: 20091117
  Receipt Date: 20091105
  Transmission Date: 20100525
  Serious: No
  Sender: FDA-Public Use
  Company Number: BR-PFIZER INC-2009268788

PATIENT
  Age: 44 Year
  Sex: Female

DRUGS (3)
  1. CELEBRA [Suspect]
     Indication: POSTOPERATIVE CARE
     Dosage: 200 MG, 2X/DAY
     Route: 048
     Dates: start: 20090804, end: 20090805
  2. CELEBRA [Suspect]
     Dosage: 200 MG, 1X/DAY
     Route: 048
     Dates: start: 20090806, end: 20090807
  3. ALPRAZOLAM [Concomitant]
     Indication: DEPRESSION
     Dosage: UNK

REACTIONS (2)
  - DYSPNOEA [None]
  - TACHYCARDIA [None]
